FAERS Safety Report 9861423 (Version 3)
Quarter: 2014Q1

REPORT INFORMATION
  Report Type: Spontaneous
  Country: US (occurrence: US)
  Receive Date: 20140203
  Receipt Date: 20140214
  Transmission Date: 20141002
  Serious: Yes (Other)
  Sender: FDA-Public Use
  Company Number: 2007BI012127

PATIENT
  Age: 37 Year
  Sex: Female

DRUGS (1)
  1. TYSABRI [Suspect]
     Indication: MULTIPLE SCLEROSIS
     Route: 042
     Dates: start: 20070505, end: 20070604

REACTIONS (4)
  - Wheezing [Unknown]
  - Urticaria [Unknown]
  - Anaphylactic shock [Recovered/Resolved]
  - General symptom [Recovered/Resolved]
